FAERS Safety Report 18790928 (Version 1)
Quarter: 2021Q1

REPORT INFORMATION
  Report Type: Spontaneous
  Country: AT (occurrence: AT)
  Receive Date: 20210126
  Receipt Date: 20210126
  Transmission Date: 20210419
  Serious: Yes (Other)
  Sender: FDA-Public Use
  Company Number: AT-TAIHO ONCOLOGY  INC-IM-2021-00028

PATIENT
  Age: 63 Year
  Sex: Female
  Weight: 80 kg

DRUGS (9)
  1. LONSURF [Suspect]
     Active Substance: TIPIRACIL HYDROCHLORIDE\TRIFLURIDINE
     Dosage: 65 MG (35 MG/M2), BID, ON DAYS 1?5 AND 8?12 OF A 28?DAYCYCLE
     Route: 048
     Dates: start: 201910, end: 201910
  2. AVASTIN [Concomitant]
     Active Substance: BEVACIZUMAB
     Dosage: 5 MG/M2
     Route: 065
     Dates: start: 202008, end: 202011
  3. AVASTIN [Concomitant]
     Active Substance: BEVACIZUMAB
     Indication: COLON CANCER
     Dosage: 5 MG/M2
     Route: 065
     Dates: start: 202003, end: 202006
  4. LONSURF [Suspect]
     Active Substance: TIPIRACIL HYDROCHLORIDE\TRIFLURIDINE
     Dosage: 100 MG DAILY
     Route: 048
     Dates: start: 202008, end: 202011
  5. LONSURF [Suspect]
     Active Substance: TIPIRACIL HYDROCHLORIDE\TRIFLURIDINE
     Dosage: 115 MG DAILY
     Route: 048
     Dates: start: 202002, end: 202002
  6. REGORAFENIB. [Concomitant]
     Active Substance: REGORAFENIB
     Indication: COLON CANCER
     Dosage: UNK
     Route: 065
     Dates: start: 201907, end: 201910
  7. LONSURF [Suspect]
     Active Substance: TIPIRACIL HYDROCHLORIDE\TRIFLURIDINE
     Indication: COLON CANCER
     Dosage: 65 MG (35 MG/M2), BID, ON DAYS 1?5 AND 8?12 OF A 28?DAYCYCLE
     Route: 048
     Dates: start: 201710, end: 201810
  8. LONSURF [Suspect]
     Active Substance: TIPIRACIL HYDROCHLORIDE\TRIFLURIDINE
     Dosage: 100 MG DAILY
     Route: 048
     Dates: start: 202003, end: 202006
  9. LONSURF [Suspect]
     Active Substance: TIPIRACIL HYDROCHLORIDE\TRIFLURIDINE
     Dosage: 115 MG DAILY
     Route: 048
     Dates: start: 201911, end: 201912

REACTIONS (9)
  - Neutropenia [Recovered/Resolved]
  - Wound infection [Unknown]
  - C-reactive protein increased [Recovered/Resolved]
  - Pneumonia [Recovered/Resolved]
  - Disease progression [Unknown]
  - Leukopenia [Recovered/Resolved]
  - Disease progression [Unknown]
  - Pyrexia [Recovered/Resolved]
  - Product use issue [Recovered/Resolved]

NARRATIVE: CASE EVENT DATE: 201810
